FAERS Safety Report 20945410 (Version 1)
Quarter: 2022Q2

REPORT INFORMATION
  Report Type: Spontaneous
  Country: US (occurrence: None)
  Receive Date: 20220609
  Receipt Date: 20220609
  Transmission Date: 20220721
  Serious: Yes (Other)
  Sender: FDA-Public Use
  Company Number: None

PATIENT
  Age: 79 Year
  Sex: Male
  Weight: 78.75 kg

DRUGS (15)
  1. GEMTESA [Suspect]
     Active Substance: VIBEGRON
     Indication: Hypertonic bladder
     Dosage: FREQUENCY : DAILY;?
     Route: 048
     Dates: start: 20220520, end: 20220607
  2. DIOVAN [Concomitant]
     Active Substance: VALSARTAN
  3. ELIQUIS [Concomitant]
     Active Substance: APIXABAN
  4. LUMIGAN [Concomitant]
     Active Substance: BIMATOPROST
  5. FROVA [Concomitant]
     Active Substance: FROVATRIPTAN SUCCINATE
  6. Neuriva [Concomitant]
  7. Vit. D3 [Concomitant]
  8. Chelated Magnesium [Concomitant]
  9. LUTEIN [Concomitant]
     Active Substance: LUTEIN
  10. ZEAXANTHIN [Concomitant]
     Active Substance: ZEAXANTHIN
  11. EMERGEN-C [Concomitant]
     Active Substance: VITAMINS
  12. Tylenol X-Strength [Concomitant]
  13. systane Ultra Lubricant eye gtt [Concomitant]
  14. FLAXSEED [Concomitant]
     Active Substance: FLAX SEED
  15. HERBALS\TURMERIC [Concomitant]
     Active Substance: HERBALS\TURMERIC

REACTIONS (4)
  - Urinary bladder haemorrhage [None]
  - Thrombosis [None]
  - Headache [None]
  - Fatigue [None]

NARRATIVE: CASE EVENT DATE: 20220607
